FAERS Safety Report 9880891 (Version 1)
Quarter: 2014Q1

REPORT INFORMATION
  Report Type: Spontaneous
  Country: US (occurrence: None)
  Receive Date: 20140206
  Receipt Date: 20140206
  Transmission Date: 20141002
  Serious: Yes (Other)
  Sender: FDA-Public Use
  Company Number: None

PATIENT
  Age: 14 Month
  Sex: Male
  Weight: 10.1 kg

DRUGS (1)
  1. CHOLECALCIFEROL [Suspect]
     Indication: SUPPLEMENTATION THERAPY
     Route: 048
     Dates: start: 20140101, end: 20140124

REACTIONS (1)
  - Incorrect dose administered [None]
